FAERS Safety Report 17874076 (Version 6)
Quarter: 2021Q1

REPORT INFORMATION
  Report Type: Spontaneous
  Country: CH (occurrence: CH)
  Receive Date: 20200609
  Receipt Date: 20210211
  Transmission Date: 20210419
  Serious: Yes (Hospitalization, Other)
  Sender: FDA-Public Use
  Company Number: CH-BRISTOL-MYERS SQUIBB COMPANY-BMS-2020-045128

PATIENT
  Age: 69 Year
  Sex: Female

DRUGS (3)
  1. OPDIVO [Suspect]
     Active Substance: NIVOLUMAB
     Indication: MALIGNANT MELANOMA
     Dosage: UNK
     Route: 065
     Dates: start: 20190830, end: 20191121
  2. OPDIVO [Suspect]
     Active Substance: NIVOLUMAB
     Dosage: 240 MILLIGRAM
     Route: 065
     Dates: start: 20201103, end: 20201117
  3. YERVOY [Suspect]
     Active Substance: IPILIMUMAB
     Indication: MALIGNANT MELANOMA
     Dosage: UNK
     Route: 065
     Dates: start: 20190830, end: 20191121

REACTIONS (15)
  - Polyarthritis [Unknown]
  - CNS ventriculitis [Unknown]
  - Immune-mediated enterocolitis [Unknown]
  - Hypokalaemia [Unknown]
  - Rash [Unknown]
  - Melanoma recurrent [Unknown]
  - Malnutrition [Recovering/Resolving]
  - Lipase increased [Unknown]
  - Encephalitis [Unknown]
  - Hepatitis [Unknown]
  - Enteritis [Unknown]
  - Hypophosphataemia [Unknown]
  - Amylase increased [Unknown]
  - Brain abscess [Unknown]
  - Streptococcal bacteraemia [Unknown]

NARRATIVE: CASE EVENT DATE: 20191023
